FAERS Safety Report 17723507 (Version 2)
Quarter: 2020Q2

REPORT INFORMATION
  Report Type: Spontaneous
  Country: US (occurrence: US)
  Receive Date: 20200429
  Receipt Date: 20200618
  Transmission Date: 20200714
  Serious: Yes (Other)
  Sender: FDA-Public Use
  Company Number: US-GLENMARK PHARMACEUTICALS-2020GMK046977

PATIENT

DRUGS (3)
  1. NORETHINDRONE ACETATE AND ETHINYL ESTRADIOL TABLETS USP, 1MG/0.02 MG [Suspect]
     Active Substance: ETHINYL ESTRADIOL\NORETHINDRONE ACETATE
     Indication: ORAL CONTRACEPTION
     Dosage: 1 DOSAGE FORM, OD
     Route: 048
     Dates: start: 202002, end: 20200327
  2. BUSPIRONE [Concomitant]
     Active Substance: BUSPIRONE HYDROCHLORIDE
     Indication: DEPRESSION
     Dosage: UNK, TOTAL DAILY DOSE: 30-50 MILLIGRAM (CAN TAKE ANYWHERE FROM 3-5 TIMES A DAY)
     Route: 048
  3. LAMOTRIGINE. [Interacting]
     Active Substance: LAMOTRIGINE
     Indication: BIPOLAR DISORDER
     Dosage: 50 MILLIGRAM, QD
     Route: 048

REACTIONS (7)
  - Intentional dose omission [Unknown]
  - Headache [Recovered/Resolved]
  - Drug ineffective [Unknown]
  - Migraine [Recovered/Resolved]
  - Pregnancy on oral contraceptive [Unknown]
  - Coronavirus infection [Unknown]
  - Drug interaction [Unknown]

NARRATIVE: CASE EVENT DATE: 2020
